FAERS Safety Report 4281503-X (Version None)
Quarter: 2004Q1

REPORT INFORMATION
  Report Type: 
  Country: None (occurrence: None)
  Receive Date: 20040112
  Receipt Date: 20030613
  Transmission Date: 20041129
  Serious: Yes (Other)
  Sender: FDA-Public Use
  Company Number: US-JNJFOC-20030601676

PATIENT
  Age: 71 Year
  Sex: Male

DRUGS (5)
  1. REOPRO [Suspect]
     Indication: CORONARY ARTERY SURGERY
     Dosage: 1 IN 1 TOTAL, INTRAVENOUS
     Route: 042
     Dates: start: 20030613, end: 20030613
  2. ACETYLSALICYLIC ACID SRT [Concomitant]
  3. HEPARIN [Concomitant]
  4. PLAVIX [Concomitant]
  5. CLOPIDOGREL BISULFATE [Concomitant]

REACTIONS (1)
  - PLATELET DISORDER [None]
